FAERS Safety Report 16482140 (Version 1)
Quarter: 2019Q2

REPORT INFORMATION
  Report Type: Spontaneous
  Country: US (occurrence: US)
  Receive Date: 20190627
  Receipt Date: 20190627
  Transmission Date: 20190711
  Serious: No
  Sender: FDA-Public Use
  Company Number: US-SA-2019SA173361

PATIENT
  Age: 53 Year
  Sex: Female

DRUGS (1)
  1. AUBAGIO [Suspect]
     Active Substance: TERIFLUNOMIDE
     Dosage: UNK UNK, QD
     Route: 048
     Dates: start: 20160517

REACTIONS (8)
  - Depression [Unknown]
  - Skin disorder [Unknown]
  - Ageusia [Unknown]
  - Agitation [Unknown]
  - Cerebral congestion [Unknown]
  - Headache [Unknown]
  - Contusion [Unknown]
  - Weight decreased [Unknown]

NARRATIVE: CASE EVENT DATE: 20190623
